FAERS Safety Report 10070042 (Version 2)
Quarter: 2014Q2

REPORT INFORMATION
  Report Type: Spontaneous
  Country: GB (occurrence: GB)
  Receive Date: 20140410
  Receipt Date: 20140428
  Transmission Date: 20141212
  Serious: Yes (Other)
  Sender: FDA-Public Use
  Company Number: CHNY2014GB001000

PATIENT
  Sex: Female

DRUGS (5)
  1. VOLTAROL EMULGEL P [Suspect]
     Indication: PERIARTHRITIS
     Route: 065
  2. VOLTAROL EMULGEL P [Suspect]
     Indication: ARTHRITIS
  3. PREDNISOLONE [Suspect]
  4. CORTISONE [Suspect]
     Route: 065
  5. ASPIRIN [Concomitant]

REACTIONS (5)
  - Swelling face [Unknown]
  - Asthma [Unknown]
  - Furuncle [Unknown]
  - Haemorrhage [Unknown]
  - Mouth ulceration [Unknown]
